FAERS Safety Report 19666230 (Version 1)
Quarter: 2021Q3

REPORT INFORMATION
  Report Type: Spontaneous
  Country: US (occurrence: US)
  Receive Date: 20210806
  Receipt Date: 20210806
  Transmission Date: 20211014
  Serious: Yes (Other)
  Sender: FDA-Public Use
  Company Number: None

PATIENT
  Age: 52 Year
  Sex: Female
  Weight: 74.84 kg

DRUGS (7)
  1. PRIMIDONE 50MG [Concomitant]
     Active Substance: PRIMIDONE
  2. ESZOPICLONE 2MG [Concomitant]
     Active Substance: ESZOPICLONE
  3. BEANO ULTRA 800 [Concomitant]
  4. CHANTIX [Suspect]
     Active Substance: VARENICLINE TARTRATE
     Indication: SMOKING CESSATION THERAPY
  5. TOPIRAMATE 100 MD [Concomitant]
  6. GABAPENTIN 300MG [Concomitant]
     Active Substance: GABAPENTIN
  7. LAMOTRIGINE 150MG [Concomitant]
     Active Substance: LAMOTRIGINE

REACTIONS (3)
  - Recalled product administered [None]
  - Drug ineffective [None]
  - Blood test abnormal [None]

NARRATIVE: CASE EVENT DATE: 20210412
